FAERS Safety Report 19505631 (Version 1)
Quarter: 2021Q3

REPORT INFORMATION
  Report Type: Spontaneous
  Country: FR (occurrence: FR)
  Receive Date: 20210707
  Receipt Date: 20210707
  Transmission Date: 20211014
  Serious: Yes (Other)
  Sender: FDA-Public Use
  Company Number: FR-SUN PHARMACEUTICAL INDUSTRIES LTD-2021R1-302562

PATIENT
  Age: 26 Year
  Sex: Female

DRUGS (3)
  1. ALMOTRIPTAN. [Suspect]
     Active Substance: ALMOTRIPTAN
     Dosage: AT LEAST 2 PILLS PER DAY DURING 3 OR 4 DAYS COUPLE TIMES A MONTHUNK
     Route: 065
  2. VERAPAMIL [Suspect]
     Active Substance: VERAPAMIL HYDROCHLORIDE
     Indication: MIGRAINE PROPHYLAXIS
     Dosage: 240 MILLIGRAM, DAILY
     Route: 065
  3. ALMOTRIPTAN. [Suspect]
     Active Substance: ALMOTRIPTAN
     Indication: MIGRAINE PROPHYLAXIS
     Dosage: 12.5 MILLIGRAM., UNK
     Route: 065

REACTIONS (3)
  - Inappropriate schedule of product administration [Unknown]
  - Premature delivery [Unknown]
  - Exposure during pregnancy [Unknown]
